FAERS Safety Report 8547009-4 (Version None)
Quarter: 2012Q3

REPORT INFORMATION
  Report Type: 
  Country: None (occurrence: None)
  Receive Date: 20120727
  Receipt Date: 20120308
  Transmission Date: 20120928
  Serious: No
  Sender: FDA-Public Use
  Company Number: US-ASTRAZENECA-2012SE16178

PATIENT
  Age: 76 Year
  Sex: Female

DRUGS (4)
  1. SEROQUEL [Suspect]
     Route: 048
  2. ZOLOFT [Concomitant]
  3. ATIVAN [Concomitant]
  4. WELLBUTRIN [Concomitant]

REACTIONS (2)
  - ORTHOSTATIC HYPOTENSION [None]
  - FEELING ABNORMAL [None]
